FAERS Safety Report 4753522-8 (Version None)
Quarter: 2005Q3

REPORT INFORMATION
  Report Type: 
  Country: None (occurrence: None)
  Receive Date: 20050824
  Receipt Date: 20050810
  Transmission Date: 20060218
  Serious: Yes (Other)
  Sender: FDA-Public Use
  Company Number: 230001L05ISR

PATIENT
  Age: 36 Year
  Sex: Female

DRUGS (1)
  1. REBIF [Suspect]
     Indication: MULTIPLE SCLEROSIS
     Dosage: SUBCUTANEOUS
     Route: 058

REACTIONS (5)
  - ASTHENIA [None]
  - ATROPHY [None]
  - HYPOREFLEXIA [None]
  - MUSCULAR WEAKNESS [None]
  - POLYNEUROPATHY [None]
